FAERS Safety Report 24557282 (Version 8)
Quarter: 2025Q3

REPORT INFORMATION
  Report Type: Report from Study
  Country: AR (occurrence: AR)
  Receive Date: 20241028
  Receipt Date: 20250910
  Transmission Date: 20251020
  Serious: Yes (Hospitalization, Other)
  Sender: AMGEN
  Company Number: AR-AMGEN-ARGSL2024135098

PATIENT
  Age: 49 Year
  Sex: Female

DRUGS (7)
  1. VECTIBIX [Suspect]
     Active Substance: PANITUMUMAB
     Indication: Colorectal cancer
     Dosage: UNK, QMO (31 DAYS)
     Route: 065
     Dates: start: 20240704, end: 2024
  2. VECTIBIX [Suspect]
     Active Substance: PANITUMUMAB
     Route: 065
     Dates: start: 2024
  3. VECTIBIX [Suspect]
     Active Substance: PANITUMUMAB
     Route: 065
     Dates: start: 2025
  4. VECTIBIX [Suspect]
     Active Substance: PANITUMUMAB
     Route: 065
     Dates: start: 2025
  5. MEPREDNISONE [Suspect]
     Active Substance: MEPREDNISONE
     Indication: Drug hypersensitivity
     Route: 065
     Dates: start: 2025
  6. MEPREDNISONE [Suspect]
     Active Substance: MEPREDNISONE
     Indication: Pruritus
  7. MEPREDNISONE [Suspect]
     Active Substance: MEPREDNISONE
     Indication: Skin exfoliation

REACTIONS (29)
  - Ill-defined disorder [Not Recovered/Not Resolved]
  - Renal disorder [Unknown]
  - Nausea [Unknown]
  - Vomiting [Unknown]
  - Dehydration [Unknown]
  - Skin wrinkling [Unknown]
  - Skin burning sensation [Unknown]
  - Dermatitis allergic [Unknown]
  - Urticaria [Unknown]
  - Pain [Unknown]
  - Back pain [Unknown]
  - Hypersensitivity [Unknown]
  - Acne [Unknown]
  - Rash macular [Unknown]
  - Weight decreased [Unknown]
  - Rash [Unknown]
  - Pruritus [Unknown]
  - Skin exfoliation [Unknown]
  - Dry skin [Unknown]
  - Aphthous ulcer [Unknown]
  - Depressed mood [Not Recovered/Not Resolved]
  - Dandruff [Unknown]
  - Arthralgia [Unknown]
  - Off label use [Unknown]
  - Paraesthesia [Unknown]
  - Weight increased [Unknown]
  - Drug hypersensitivity [Unknown]
  - Urinary tract infection [Unknown]
  - Swelling [Unknown]

NARRATIVE: CASE EVENT DATE: 20240101
